FAERS Safety Report 14458843 (Version 1)
Quarter: 2018Q1

REPORT INFORMATION
  Report Type: Spontaneous
  Country: DE (occurrence: DE)
  Receive Date: 20180130
  Receipt Date: 20180130
  Transmission Date: 20180509
  Serious: Yes (Congenital Anomaly)
  Sender: FDA-Public Use
  Company Number: DE-ALLERGAN-1804404US

PATIENT
  Age: 1 Day
  Sex: Female
  Weight: 3.64 kg

DRUGS (11)
  1. SIMVASTATIN. [Concomitant]
     Active Substance: SIMVASTATIN
     Indication: PATERNAL EXPOSURE TIMING UNSPECIFIED
     Dosage: UNK
     Route: 065
  2. ESCITALOPRAM OXALATE - BP [Suspect]
     Active Substance: ESCITALOPRAM OXALATE
     Indication: MATERNAL EXPOSURE TIMING UNSPECIFIED
     Dosage: 7.5 MG, QD
     Route: 064
     Dates: start: 20160819, end: 20170529
  3. BICANORM [Concomitant]
     Active Substance: SODIUM BICARBONATE
     Indication: PATERNAL EXPOSURE TIMING UNSPECIFIED
     Route: 065
     Dates: start: 20160819, end: 20170529
  4. VALSARTAN. [Concomitant]
     Active Substance: VALSARTAN
     Indication: PATERNAL EXPOSURE TIMING UNSPECIFIED
     Dosage: UNK
     Route: 065
     Dates: start: 20160819, end: 20170529
  5. PARACETAMOL [Concomitant]
     Active Substance: ACETAMINOPHEN
     Indication: MATERNAL EXPOSURE TIMING UNSPECIFIED
     Route: 064
  6. EBRANTIL [Concomitant]
     Active Substance: URAPIDIL
     Indication: PATERNAL EXPOSURE TIMING UNSPECIFIED
     Dosage: UNK
     Route: 065
     Dates: start: 20160819, end: 20170529
  7. AMLODIPINE [Concomitant]
     Active Substance: AMLODIPINE BESYLATE
     Indication: PATERNAL EXPOSURE TIMING UNSPECIFIED
     Dosage: 10 MG, QD
     Route: 065
     Dates: start: 20160819, end: 20170529
  8. FOLSAN [Concomitant]
     Active Substance: FOLIC ACID
     Indication: MATERNAL EXPOSURE TIMING UNSPECIFIED
     Dosage: 0.4 MG, QD
     Route: 064
     Dates: start: 20160920, end: 20170529
  9. RAMILICH [Concomitant]
     Active Substance: RAMIPRIL
     Indication: PATERNAL EXPOSURE TIMING UNSPECIFIED
     Dosage: 10 MG, QD
     Route: 065
     Dates: start: 20160819, end: 20170529
  10. DEKRISTOL [Concomitant]
     Active Substance: CHOLECALCIFEROL
     Indication: PATERNAL EXPOSURE TIMING UNSPECIFIED
     Dosage: 20000 IU, Q2WEEKS
     Route: 065
     Dates: start: 20160819, end: 20170529
  11. ASS 100 [Concomitant]
     Active Substance: ASPIRIN
     Indication: PATERNAL EXPOSURE TIMING UNSPECIFIED
     Dosage: 100 MG, UNK
     Route: 065
     Dates: start: 20160819, end: 20170529

REACTIONS (5)
  - Exposure via father [Unknown]
  - Truncus arteriosus persistent [Recovered/Resolved with Sequelae]
  - Atrial septal defect [Recovered/Resolved]
  - Foetal exposure during pregnancy [Unknown]
  - Ventricular septal defect [Recovered/Resolved with Sequelae]

NARRATIVE: CASE EVENT DATE: 20170529
